FAERS Safety Report 19416095 (Version 2)
Quarter: 2021Q2

REPORT INFORMATION
  Report Type: Spontaneous
  Country: US (occurrence: US)
  Receive Date: 20210615
  Receipt Date: 20210622
  Transmission Date: 20210717
  Serious: No
  Sender: FDA-Public Use
  Company Number: US-TEVA-2021-US-1921904

PATIENT
  Age: 39 Year
  Sex: Female

DRUGS (1)
  1. AJOVY [Suspect]
     Active Substance: FREMANEZUMAB-VFRM
     Indication: MIGRAINE
     Dosage: USED AJOVY MANY TIMES AT A MONTHLY DOSE
     Route: 065

REACTIONS (4)
  - Incorrect dose administered by device [Unknown]
  - Injection site pain [Unknown]
  - Device delivery system issue [Unknown]
  - Injection site haemorrhage [Unknown]
